FAERS Safety Report 7735425-X (Version None)
Quarter: 2011Q3

REPORT INFORMATION
  Report Type: 
  Country: None (occurrence: None)
  Receive Date: 20110907
  Receipt Date: 20110830
  Transmission Date: 20111222
  Serious: Yes (Hospitalization)
  Sender: FDA-Public Use
  Company Number: JP-ABBOTT-11P-087-0851229-00

PATIENT
  Sex: Female
  Weight: 41 kg

DRUGS (9)
  1. HUMIRA [Suspect]
     Dates: start: 20110321
  2. PREDNISOLONE [Concomitant]
     Indication: CROHN'S DISEASE
     Dosage: 2.5 MG DAILY
     Route: 048
  3. BROTIZOLAM [Concomitant]
     Indication: PRODUCT USED FOR UNKNOWN INDICATION
     Route: 048
  4. ETIZOLAM [Concomitant]
     Indication: PRODUCT USED FOR UNKNOWN INDICATION
     Route: 048
  5. HUMIRA [Suspect]
     Indication: CROHN'S DISEASE
     Route: 058
     Dates: start: 20110221, end: 20110221
  6. RABEPRAZOLE SODIUM [Concomitant]
     Indication: PRODUCT USED FOR UNKNOWN INDICATION
     Route: 048
  7. HUMIRA [Suspect]
     Dates: start: 20110307, end: 20110307
  8. MESALAMINE [Concomitant]
     Indication: CROHN'S DISEASE
     Dosage: 2250 MG DAILY
     Route: 048
  9. FERROUS CITRATE [Concomitant]
     Indication: PRODUCT USED FOR UNKNOWN INDICATION
     Route: 048

REACTIONS (2)
  - INTESTINAL STENOSIS [None]
  - DIARRHOEA [None]
